FAERS Safety Report 6573656-5 (Version None)
Quarter: 2010Q1

REPORT INFORMATION
  Report Type: 
  Country: None (occurrence: None)
  Receive Date: 20100208
  Receipt Date: 20100202
  Transmission Date: 20100710
  Serious: Yes (Other)
  Sender: FDA-Public Use
  Company Number: US-RB-001374-10

PATIENT
  Age: 44 Year
  Sex: Male

DRUGS (1)
  1. SUBOXONE [Suspect]
     Indication: DRUG USE FOR UNKNOWN INDICATION
     Dosage: UNKNOWN DOSING DETAILS
     Route: 065

REACTIONS (9)
  - CELLULITIS [None]
  - DEPRESSION [None]
  - DEPRESSION SUICIDAL [None]
  - HEPATITIS C [None]
  - INFLUENZA [None]
  - INSOMNIA [None]
  - OEDEMA PERIPHERAL [None]
  - PAIN [None]
  - TENDON RUPTURE [None]
